FAERS Safety Report 12769253 (Version 1)
Quarter: 2016Q3

REPORT INFORMATION
  Report Type: Report from Study
  Country: US (occurrence: US)
  Receive Date: 20160921
  Receipt Date: 20160921
  Transmission Date: 20161109
  Serious: Yes (Hospitalization)
  Sender: FDA-Public Use
  Company Number: US-GILEAD-2016-0233595

PATIENT
  Age: 33 Year
  Sex: Male

DRUGS (1)
  1. EMTRICITABINE/TENOFOVIR DISOPROXIL FUMARATE [Suspect]
     Active Substance: EMTRICITABINE\TENOFOVIR DISOPROXIL
     Indication: PROPHYLAXIS AGAINST HIV INFECTION
     Dosage: 500 MG, UNK
     Route: 048
     Dates: start: 20160323, end: 20160823

REACTIONS (4)
  - Chills [Recovering/Resolving]
  - Malaise [Recovering/Resolving]
  - Night sweats [Recovering/Resolving]
  - Liver function test increased [Recovering/Resolving]
